FAERS Safety Report 5216481-X (Version None)
Quarter: 2007Q1

REPORT INFORMATION
  Report Type: 
  Country: None (occurrence: None)
  Receive Date: 20070123
  Receipt Date: 20070117
  Transmission Date: 20070707
  Serious: Yes (Other)
  Sender: FDA-Public Use
  Company Number: DE-MERCK-0701DEU00052

PATIENT
  Sex: Male

DRUGS (2)
  1. FOSAMAX [Suspect]
     Route: 048
  2. MARCUMAR [Suspect]
     Indication: THROMBOSIS
     Route: 048
     Dates: start: 20060101

REACTIONS (4)
  - DRUG INTERACTION [None]
  - PROTHROMBIN TIME SHORTENED [None]
  - PULMONARY EMBOLISM [None]
  - THROMBOSIS [None]
